FAERS Safety Report 7138062-3 (Version None)
Quarter: 2010Q4

REPORT INFORMATION
  Report Type: 
  Country: None (occurrence: None)
  Receive Date: 20101206
  Receipt Date: 20101203
  Transmission Date: 20110411
  Serious: Yes (Death, Life-Threatening)
  Sender: FDA-Public Use
  Company Number: PT-B.I. PHARMACEUTICALS,INC./RIDGEFIELD-2010-DE-06676PO

PATIENT
  Age: 45 Year
  Sex: Female

DRUGS (1)
  1. DABIGATRAN [Suspect]
     Indication: PROPHYLAXIS

REACTIONS (2)
  - PERIPHERAL EMBOLISM [None]
  - PULMONARY EMBOLISM [None]
